FAERS Safety Report 12500241 (Version 2)
Quarter: 2016Q4

REPORT INFORMATION
  Report Type: Spontaneous
  Country: TW (occurrence: TW)
  Receive Date: 20160627
  Receipt Date: 20161124
  Transmission Date: 20170207
  Serious: Yes (Hospitalization)
  Sender: FDA-Public Use
  Company Number: TW-PSKUSFDA-2016-TW-0005

PATIENT

DRUGS (2)
  1. SANCUSO [Suspect]
     Active Substance: GRANISETRON
     Indication: PROPHYLAXIS OF NAUSEA AND VOMITING
     Dosage: 1 PATCH OF SANCUSO
     Route: 062
     Dates: start: 20160610, end: 20160613
  2. R CHOP [Concomitant]
     Active Substance: CYCLOPHOSPHAMIDE\DOXORUBICIN\PREDNISONE\RITUXIMAB\VINCRISTINE
     Indication: CHEMOTHERAPY
     Dosage: UNKNOWN
     Route: 065
     Dates: start: 201605

REACTIONS (5)
  - Off label use [Unknown]
  - Dehydration [Unknown]
  - Inappropriate schedule of drug administration [None]
  - Nausea [Unknown]
  - Vomiting [Unknown]

NARRATIVE: CASE EVENT DATE: 201606
